FAERS Safety Report 6016899-1 (Version None)
Quarter: 2008Q4

REPORT INFORMATION
  Report Type: 
  Country: None (occurrence: None)
  Receive Date: 20081219
  Receipt Date: 20081212
  Transmission Date: 20090506
  Serious: Yes (Other)
  Sender: FDA-Public Use
  Company Number: THYR-1000111

PATIENT
  Age: 68 Year
  Sex: Female

DRUGS (1)
  1. THYROGEN [Suspect]
     Indication: SCAN THYROID GLAND
     Dates: start: 20080401

REACTIONS (1)
  - THROMBOPHLEBITIS [None]
